FAERS Safety Report 4591166-1 (Version None)
Quarter: 2005Q1

REPORT INFORMATION
  Report Type: 
  Country: None (occurrence: None)
  Receive Date: 20050225
  Receipt Date: 20050215
  Transmission Date: 20050727
  Serious: Yes (Other)
  Sender: FDA-Public Use
  Company Number: US-JNJFOC-20050204412

PATIENT
  Age: 83 Year
  Sex: Female

DRUGS (3)
  1. TOPAMAX [Suspect]
     Dosage: ^AT LEAST ONE DOSE TAKEN.^
  2. TOPROL-XL [Suspect]
     Indication: HYPERTENSION
  3. NORVASC [Concomitant]

REACTIONS (2)
  - HYPERTENSION [None]
  - MEDICATION ERROR [None]
